FAERS Safety Report 7310282-4 (Version None)
Quarter: 2011Q1

REPORT INFORMATION
  Report Type: 
  Country: None (occurrence: None)
  Receive Date: 20110224
  Receipt Date: 20110215
  Transmission Date: 20110831
  Serious: Yes (Hospitalization)
  Sender: FDA-Public Use
  Company Number: US-US-EMD SERONO, INC.-7001548

PATIENT
  Sex: Male
  Weight: 70 kg

DRUGS (6)
  1. LISINOPRIL [Concomitant]
     Indication: HYPERTENSION
  2. BACLOFEN [Concomitant]
     Indication: MULTIPLE SCLEROSIS
  3. VERAPAMIL [Concomitant]
     Indication: HYPERTENSION
  4. COMBIVENT [Concomitant]
     Indication: CHRONIC OBSTRUCTIVE PULMONARY DISEASE
  5. UNSPECIFIED MEDICATIONS [Concomitant]
     Indication: HYPERTENSION
  6. REBIF [Suspect]
     Indication: MULTIPLE SCLEROSIS
     Route: 058
     Dates: start: 20090706

REACTIONS (5)
  - CHEST DISCOMFORT [None]
  - FALL [None]
  - DYSPNOEA [None]
  - CHEST PAIN [None]
  - STRESS [None]
